FAERS Safety Report 6625015-4 (Version None)
Quarter: 2010Q1

REPORT INFORMATION
  Report Type: 
  Country: None (occurrence: None)
  Receive Date: 20100310
  Receipt Date: 20090918
  Transmission Date: 20100710
  Serious: No
  Sender: FDA-Public Use
  Company Number: US-BIOGENIDEC-2009BI030440

PATIENT
  Age: 20 Year
  Sex: Female

DRUGS (1)
  1. AVONEX [Suspect]
     Indication: MULTIPLE SCLEROSIS
     Route: 030
     Dates: start: 20090909, end: 20090916

REACTIONS (10)
  - ABASIA [None]
  - EYE SWELLING [None]
  - MYALGIA [None]
  - OCULAR HYPERAEMIA [None]
  - PHOTOSENSITIVITY REACTION [None]
  - PYREXIA [None]
  - SPEECH DISORDER [None]
  - SYNCOPE [None]
  - VOMITING [None]
  - WEIGHT DECREASED [None]
